FAERS Safety Report 7280037-8 (Version None)
Quarter: 2011Q1

REPORT INFORMATION
  Report Type: 
  Country: None (occurrence: None)
  Receive Date: 20110208
  Receipt Date: 20110202
  Transmission Date: 20110831
  Serious: Yes (Hospitalization)
  Sender: FDA-Public Use
  Company Number: SE-PFIZER INC-2011024707

PATIENT
  Age: 80 Year
  Sex: Female

DRUGS (14)
  1. SELOKEN ZOC [Suspect]
     Indication: OEDEMA DUE TO CARDIAC DISEASE
     Dosage: UNK
     Route: 048
     Dates: end: 20101123
  2. ACETYLCYSTEIN AL [Concomitant]
     Dosage: UNK
  3. SPIRONOLACTONE [Suspect]
     Dosage: UNK
     Dates: end: 20101123
  4. OMEPRAZOLE [Concomitant]
     Dosage: UNK
  5. ACETAMINOPHEN [Concomitant]
     Dosage: UNK
  6. TROMBYL [Concomitant]
     Dosage: UNK
  7. IPRATROPIUM BROMIDE AND ALBUTEROL SULFATE [Concomitant]
     Dosage: UNK
  8. FURIX [Suspect]
     Indication: OEDEMA DUE TO CARDIAC DISEASE
     Dosage: UNK
     Route: 048
     Dates: end: 20101123
  9. RAMIPRIL [Suspect]
     Indication: OEDEMA DUE TO CARDIAC DISEASE
     Dosage: UNK
     Dates: end: 20101123
  10. ATORVASTATIN [Concomitant]
     Dosage: UNK
  11. PRIMPERAN TAB [Concomitant]
     Dosage: UNK
  12. DYGRATYL [Concomitant]
     Dosage: UNK
  13. GLYTRIN [Concomitant]
     Dosage: UNK
  14. LEVOTHYROXINE SODIUM [Concomitant]
     Dosage: UNK

REACTIONS (1)
  - HYPOTENSION [None]
